FAERS Safety Report 26215939 (Version 1)
Quarter: 2025Q4

REPORT INFORMATION
  Report Type: Spontaneous
  Country: CN (occurrence: CN)
  Receive Date: 20251231
  Receipt Date: 20251231
  Transmission Date: 20260117
  Serious: Yes (Hospitalization)
  Sender: BEIGENE
  Company Number: CN-BEONEMEDICINES-BGN-2025-023722

PATIENT
  Age: 58 Year
  Sex: Male
  Weight: 60 kg

DRUGS (12)
  1. TISLELIZUMAB [Suspect]
     Active Substance: TISLELIZUMAB
     Indication: Bladder squamous cell carcinoma stage unspecified
     Dosage: 200 MILLIGRAM
  2. TISLELIZUMAB [Suspect]
     Active Substance: TISLELIZUMAB
     Dosage: 200 MILLIGRAM
     Route: 041
  3. TISLELIZUMAB [Suspect]
     Active Substance: TISLELIZUMAB
     Dosage: 200 MILLIGRAM
     Route: 041
  4. TISLELIZUMAB [Suspect]
     Active Substance: TISLELIZUMAB
     Dosage: 200 MILLIGRAM
  5. CARBOPLATIN [Suspect]
     Active Substance: CARBOPLATIN
     Indication: Bladder squamous cell carcinoma stage unspecified
     Dosage: 400 MILLIGRAM
  6. CARBOPLATIN [Suspect]
     Active Substance: CARBOPLATIN
     Dosage: 400 MILLIGRAM
     Route: 041
  7. CARBOPLATIN [Suspect]
     Active Substance: CARBOPLATIN
     Dosage: 400 MILLIGRAM
     Route: 041
  8. CARBOPLATIN [Suspect]
     Active Substance: CARBOPLATIN
     Dosage: 400 MILLIGRAM
  9. PACLITAXEL [Suspect]
     Active Substance: PACLITAXEL
     Indication: Bladder squamous cell carcinoma stage unspecified
     Dosage: 350 MILLIGRAM
  10. PACLITAXEL [Suspect]
     Active Substance: PACLITAXEL
     Dosage: 350 MILLIGRAM
     Route: 041
  11. PACLITAXEL [Suspect]
     Active Substance: PACLITAXEL
     Dosage: 350 MILLIGRAM
     Route: 041
  12. PACLITAXEL [Suspect]
     Active Substance: PACLITAXEL
     Dosage: 350 MILLIGRAM

REACTIONS (2)
  - Myelosuppression [Recovering/Resolving]
  - Platelet count decreased [Recovering/Resolving]

NARRATIVE: CASE EVENT DATE: 20251205
